FAERS Safety Report 15302807 (Version 3)
Quarter: 2018Q4

REPORT INFORMATION
  Report Type: Spontaneous
  Country: JP (occurrence: JP)
  Receive Date: 20180821
  Receipt Date: 20181221
  Transmission Date: 20190204
  Serious: Yes (Hospitalization)
  Sender: FDA-Public Use
  Company Number: JP-ELI_LILLY_AND_COMPANY-JP201808008875AA

PATIENT
  Age: 87 Year
  Sex: Female

DRUGS (7)
  1. MAGMITT [Concomitant]
     Active Substance: MAGNESIUM OXIDE
  2. OLUMIANT [Suspect]
     Active Substance: BARICITINIB
     Indication: RHEUMATOID ARTHRITIS
     Dosage: 2 MG, DAILY
     Route: 048
     Dates: start: 20180625, end: 20180820
  3. LASIX [Concomitant]
     Active Substance: FUROSEMIDE
     Indication: OEDEMA PERIPHERAL
     Dosage: 20 MG, DAILY
     Dates: start: 20180502
  4. BACTAR [Concomitant]
     Active Substance: SULFAMERAZINE\TRIMETHOPRIM
     Dosage: 1 DF, WEEKLY (1/W)
  5. DIOVAN [Concomitant]
     Active Substance: VALSARTAN
  6. TAKEPRON [Concomitant]
     Active Substance: LANSOPRAZOLE
  7. CONIEL [Concomitant]
     Active Substance: BENIDIPINE HYDROCHLORIDE

REACTIONS (1)
  - Colon cancer stage III [Recovering/Resolving]

NARRATIVE: CASE EVENT DATE: 201808
